FAERS Safety Report 16539245 (Version 1)
Quarter: 2019Q3

REPORT INFORMATION
  Report Type: Spontaneous
  Country: US (occurrence: US)
  Receive Date: 20190705
  Receipt Date: 20190705
  Transmission Date: 20191004
  Serious: Yes (Hospitalization)
  Sender: FDA-Public Use
  Company Number: None

PATIENT
  Age: 70 Year
  Sex: Female

DRUGS (17)
  1. METHOTREXATE. [Concomitant]
     Active Substance: METHOTREXATE
  2. LATANOPROST. [Concomitant]
     Active Substance: LATANOPROST
  3. HUMIRA [Suspect]
     Active Substance: ADALIMUMAB
     Indication: RHEUMATOID ARTHRITIS
     Dosage: ?          OTHER FREQUENCY:QOWK;?
     Route: 058
     Dates: start: 20150522
  4. CELEBREX [Concomitant]
     Active Substance: CELECOXIB
  5. COMBIGAN [Concomitant]
     Active Substance: BRIMONIDINE TARTRATE\TIMOLOL MALEATE
  6. FOLIC ACID. [Concomitant]
     Active Substance: FOLIC ACID
  7. LOSARTAN. [Concomitant]
     Active Substance: LOSARTAN
  8. MELOXICAM. [Concomitant]
     Active Substance: MELOXICAM
  9. ATORVASTATIN [Concomitant]
     Active Substance: ATORVASTATIN
  10. FENOFIBRIC [Concomitant]
     Active Substance: FENOFIBRIC ACID
  11. ALENDRONATE [Concomitant]
     Active Substance: ALENDRONATE SODIUM
  12. OXYBUTYNIN. [Concomitant]
     Active Substance: OXYBUTYNIN CHLORIDE
  13. AMLODIPINE [Concomitant]
     Active Substance: AMLODIPINE BESYLATE
  14. OMEPRAZOLE. [Concomitant]
     Active Substance: OMEPRAZOLE
  15. RESTASIS [Concomitant]
     Active Substance: CYCLOSPORINE
  16. TRAZODONE [Concomitant]
     Active Substance: TRAZODONE HYDROCHLORIDE
  17. TRAMADOL. [Concomitant]
     Active Substance: TRAMADOL

REACTIONS (2)
  - Therapy cessation [None]
  - Surgery [None]

NARRATIVE: CASE EVENT DATE: 20190613
